FAERS Safety Report 9100281 (Version 2)
Quarter: 2013Q1

REPORT INFORMATION
  Report Type: Spontaneous
  Country: DE (occurrence: DE)
  Receive Date: 20130214
  Receipt Date: 20130222
  Transmission Date: 20140127
  Serious: Yes (Hospitalization, Other)
  Sender: FDA-Public Use
  Company Number: DE-RANBAXY-2013RR-65030

PATIENT
  Sex: Male

DRUGS (3)
  1. SUMATRIPTAN [Suspect]
     Indication: MIGRAINE
     Dosage: UNK
     Route: 065
  2. ZOLMITRIPTAN [Suspect]
     Indication: MIGRAINE
     Dosage: UNK
     Route: 065
  3. FROVATRIPTAN [Suspect]
     Indication: MIGRAINE
     Dosage: UNK
     Route: 065

REACTIONS (2)
  - Major depression [Recovered/Resolved]
  - Drug withdrawal syndrome [Recovered/Resolved]
